FAERS Safety Report 16926964 (Version 1)
Quarter: 2019Q4

REPORT INFORMATION
  Report Type: Spontaneous
  Country: US (occurrence: US)
  Receive Date: 20191016
  Receipt Date: 20191016
  Transmission Date: 20200122
  Serious: Yes (Hospitalization)
  Sender: FDA-Public Use
  Company Number: US-PURDUE-USA-2019-0148693

PATIENT
  Age: 62 Year
  Sex: Male
  Weight: 83.1 kg

DRUGS (4)
  1. GABAPENTIN. [Suspect]
     Active Substance: GABAPENTIN
     Indication: PAIN
     Route: 065
  2. GABAPENTIN. [Suspect]
     Active Substance: GABAPENTIN
     Dosage: 900 MG, TID
     Route: 048
  3. NEURONTIN [Suspect]
     Active Substance: GABAPENTIN
     Indication: PAIN
     Route: 065
  4. HYDROMORPHONE HCL (SIMILAR TO 19-892) [Suspect]
     Active Substance: HYDROMORPHONE HYDROCHLORIDE
     Indication: PAIN
     Route: 048

REACTIONS (4)
  - Pain [Unknown]
  - Burning sensation [Unknown]
  - Nasal discomfort [Unknown]
  - Memory impairment [Unknown]

NARRATIVE: CASE EVENT DATE: 201909
